FAERS Safety Report 18272385 (Version 1)
Quarter: 2020Q3

REPORT INFORMATION
  Report Type: Spontaneous
  Country: RU (occurrence: RU)
  Receive Date: 20200916
  Receipt Date: 20200916
  Transmission Date: 20201103
  Serious: Yes (Other)
  Sender: FDA-Public Use
  Company Number: RU-JNJFOC-20200913861

PATIENT
  Age: 65 Year
  Sex: Female

DRUGS (1)
  1. RIVAROXABAN [Suspect]
     Active Substance: RIVAROXABAN
     Indication: ATRIAL FIBRILLATION
     Dosage: UNK
     Route: 048

REACTIONS (4)
  - Dysphonia [Recovering/Resolving]
  - Dyspnoea [Recovering/Resolving]
  - Laryngeal haemorrhage [Recovering/Resolving]
  - Pharyngeal haematoma [Recovering/Resolving]
